FAERS Safety Report 8492945-0 (Version None)
Quarter: 2012Q3

REPORT INFORMATION
  Report Type: 
  Country: None (occurrence: None)
  Receive Date: 20120706
  Receipt Date: 20120628
  Transmission Date: 20120928
  Serious: Yes (Other)
  Sender: FDA-Public Use
  Company Number: BA-GLAXOSMITHKLINE-B0803372A

PATIENT
  Age: 36 Year
  Sex: Male

DRUGS (1)
  1. FLUTICASONE PROPIONATE [Suspect]
     Indication: NASAL POLYPS
     Dosage: 200MCG PER DAY
     Route: 045
     Dates: start: 20020101, end: 20120501

REACTIONS (1)
  - ANOSMIA [None]
